FAERS Safety Report 25140377 (Version 1)
Quarter: 2025Q2

REPORT INFORMATION
  Report Type: Spontaneous
  Country: US (occurrence: None)
  Receive Date: 20250328
  Receipt Date: 20250328
  Transmission Date: 20250716
  Serious: Yes (Other)
  Sender: FDA-CTU
  Company Number: None

PATIENT
  Sex: Male

DRUGS (1)
  1. AMVUTTRA [Suspect]
     Active Substance: VUTRISIRAN

REACTIONS (1)
  - Therapeutic response shortened [None]
